FAERS Safety Report 5896996-1 (Version None)
Quarter: 2008Q3

REPORT INFORMATION
  Report Type: 
  Country: None (occurrence: None)
  Receive Date: 20080924
  Receipt Date: 20080410
  Transmission Date: 20090109
  Serious: Yes (Disabling)
  Sender: FDA-Public Use
  Company Number: US-ASTRAZENECA-2008UW07437

PATIENT
  Sex: Female

DRUGS (4)
  1. SEROQUEL XR [Suspect]
     Route: 048
  2. LEXAPRO [Concomitant]
  3. WELLBUTRIN XL [Concomitant]
  4. EQUATTRO [Concomitant]

REACTIONS (1)
  - SOMNOLENCE [None]
